FAERS Safety Report 7008164-0 (Version None)
Quarter: 2010Q3

REPORT INFORMATION
  Report Type: 
  Country: None (occurrence: None)
  Receive Date: 20100922
  Receipt Date: 20100913
  Transmission Date: 20110219
  Serious: Yes (Hospitalization)
  Sender: FDA-Public Use
  Company Number: GB-ELI_LILLY_AND_COMPANY-GB201009004941

PATIENT

DRUGS (1)
  1. GEMCITABINE HCL [Suspect]
     Indication: ADJUVANT THERAPY
     Dosage: 1000 MG/M2, ONCE A WEEK FOR 3 OUT OF EVERY 4 WEEKS (1 CYCLE) FOR 6 CYCLES (24 WEEKS)
     Route: 042

REACTIONS (1)
  - ADVERSE EVENT [None]
